FAERS Safety Report 7945343-X (Version None)
Quarter: 2011Q4

REPORT INFORMATION
  Report Type: 
  Country: None (occurrence: None)
  Receive Date: 20111129
  Receipt Date: 20110405
  Transmission Date: 20120403
  Serious: No
  Sender: FDA-Public Use
  Company Number: US-GLAXOSMITHKLINE-A0921483A

PATIENT
  Sex: Male

DRUGS (4)
  1. WELLBUTRIN [Suspect]
     Indication: DEPRESSION
     Dosage: 100MG TWICE PER DAY
     Route: 048
     Dates: start: 20010101
  2. AMBIEN [Concomitant]
  3. SYNTHROID [Concomitant]
  4. LOTENSIN [Concomitant]

REACTIONS (2)
  - ROAD TRAFFIC ACCIDENT [None]
  - BREATH ALCOHOL TEST POSITIVE [None]
